FAERS Safety Report 5830081-X (Version None)
Quarter: 2008Q3

REPORT INFORMATION
  Report Type: 
  Country: None (occurrence: None)
  Receive Date: 20080801
  Receipt Date: 20080728
  Transmission Date: 20090109
  Serious: Yes (Other)
  Sender: FDA-Public Use
  Company Number: DE-BAYER-200823412GPV

PATIENT
  Age: 69 Year
  Sex: Male
  Weight: 88 kg

DRUGS (1)
  1. ULTRAVIST 300 [Suspect]
     Indication: ABDOMINAL NEOPLASM
     Route: 042
     Dates: start: 20071012, end: 20071012

REACTIONS (2)
  - DYSPHAGIA [None]
  - THROAT TIGHTNESS [None]
